FAERS Safety Report 5208836-4 (Version None)
Quarter: 2007Q1

REPORT INFORMATION
  Report Type: 
  Country: None (occurrence: None)
  Receive Date: 20070116
  Receipt Date: 20070110
  Transmission Date: 20070707
  Serious: Yes (Hospitalization)
  Sender: FDA-Public Use
  Company Number: US-BRISTOL-MYERS SQUIBB COMPANY-13612411

PATIENT
  Age: 38 Year
  Sex: Male

DRUGS (1)
  1. DEFINITY [Suspect]
     Indication: CHEST PAIN
     Route: 042
     Dates: start: 20061206, end: 20061206

REACTIONS (5)
  - BLOOD PRESSURE DECREASED [None]
  - DIZZINESS [None]
  - RASH [None]
  - THROAT TIGHTNESS [None]
  - URTICARIA [None]
